FAERS Safety Report 8181727-5 (Version None)
Quarter: 2012Q1

REPORT INFORMATION
  Report Type: 
  Country: None (occurrence: None)
  Receive Date: 20120302
  Receipt Date: 20110928
  Transmission Date: 20120608
  Serious: No
  Sender: FDA-Public Use
  Company Number: US-AMGEN-USASP2011050257

PATIENT
  Sex: Male

DRUGS (2)
  1. NPLATE [Suspect]
     Indication: HEPATITIS C
  2. NPLATE [Suspect]
     Indication: HEPATIC CIRRHOSIS
     Dosage: UNK
     Dates: start: 20110926

REACTIONS (7)
  - PALLOR [None]
  - FATIGUE [None]
  - ASTHENIA [None]
  - PARAESTHESIA [None]
  - INFLUENZA [None]
  - MYALGIA [None]
  - HEADACHE [None]
